FAERS Safety Report 8007022-2 (Version None)
Quarter: 2011Q4

REPORT INFORMATION
  Report Type: 
  Country: None (occurrence: None)
  Receive Date: 20111227
  Receipt Date: 20111220
  Transmission Date: 20120403
  Serious: Yes (Other)
  Sender: FDA-Public Use
  Company Number: PHHY2011GB110695

PATIENT
  Sex: Female

DRUGS (6)
  1. CLOPIDOGREL [Suspect]
     Indication: CEREBROVASCULAR ACCIDENT PROPHYLAXIS
     Dosage: UNK UKN, UNK
  2. ANTITHROMBOTIC AGENTS/APIXABAN [Suspect]
     Indication: ATRIAL FIBRILLATION
     Dosage: UNK UKN, UNK
  3. CLOPIDOGREL [Suspect]
     Indication: ATRIAL FIBRILLATION
  4. ASPIRIN [Suspect]
     Indication: ATRIAL FIBRILLATION
     Dosage: UNK UKN, UNK
  5. ASPIRIN [Suspect]
     Indication: CEREBROVASCULAR ACCIDENT PROPHYLAXIS
  6. ANTITHROMBOTIC AGENTS/APIXABAN [Suspect]
     Indication: CEREBROVASCULAR ACCIDENT PROPHYLAXIS

REACTIONS (1)
  - HAEMORRHAGE [None]
